FAERS Safety Report 18836915 (Version 1)
Quarter: 2021Q1

REPORT INFORMATION
  Report Type: Spontaneous
  Country: DE (occurrence: DE)
  Receive Date: 20210203
  Receipt Date: 20210203
  Transmission Date: 20210419
  Serious: Yes (Life-Threatening, Hospitalization)
  Sender: FDA-Public Use
  Company Number: NVSC2021DE024612

PATIENT
  Age: 15 Year
  Sex: Female
  Weight: 72 kg

DRUGS (2)
  1. PARACETAMOL [Suspect]
     Active Substance: ACETAMINOPHEN
     Indication: SUICIDAL IDEATION
     Dosage: 19 DF, QD (19 DF DOSAGE FORM EVERY DAYS)
     Route: 048
     Dates: start: 20191001, end: 20191001
  2. ANGILETTA [Concomitant]
     Indication: ORAL CONTRACEPTION
     Dosage: 1 DF, QD (1 DF DOSAGE FORM EVERY DAYS)
     Route: 048

REACTIONS (2)
  - Intentional overdose [Unknown]
  - Toxicity to various agents [Unknown]

NARRATIVE: CASE EVENT DATE: 20191001
